FAERS Safety Report 7229032-5 (Version None)
Quarter: 2011Q1

REPORT INFORMATION
  Report Type: 
  Country: None (occurrence: None)
  Receive Date: 20110117
  Receipt Date: 20110106
  Transmission Date: 20110831
  Serious: Yes (Other)
  Sender: FDA-Public Use
  Company Number: PHHO2005CA10362

PATIENT
  Sex: Female

DRUGS (2)
  1. CLOZAPINE [Suspect]
     Dates: start: 20011005
  2. CHEMOTHERAPEUTICS,OTHER [Concomitant]

REACTIONS (3)
  - NEUTROPENIA [None]
  - THROMBOCYTOSIS [None]
  - ANAEMIA MACROCYTIC [None]
